FAERS Safety Report 4633325-5 (Version None)
Quarter: 2005Q2

REPORT INFORMATION
  Report Type: 
  Country: None (occurrence: None)
  Receive Date: 20050408
  Receipt Date: 20050324
  Transmission Date: 20051028
  Serious: Yes (Hospitalization, Other)
  Sender: FDA-Public Use
  Company Number: 2005-0008074

PATIENT
  Age: 35 Year
  Sex: Male

DRUGS (3)
  1. EMTRIVA [Suspect]
  2. VIREAD [Suspect]
     Indication: HIV INFECTION
     Dosage: 300 MG, 1 IN 1 D, ORAL
     Route: 048
     Dates: end: 20050201
  3. KALETRA [Concomitant]

REACTIONS (2)
  - BLOOD CREATINE INCREASED [None]
  - DIALYSIS [None]
